FAERS Safety Report 8745666 (Version 6)
Quarter: 2013Q2

REPORT INFORMATION
  Report Type: Spontaneous
  Country: US (occurrence: US)
  Receive Date: 20120826
  Receipt Date: 20130521
  Transmission Date: 20140414
  Serious: Yes (Hospitalization, Disabling, Other)
  Sender: FDA-Public Use
  Company Number: US-009507513-1208USA007496

PATIENT
  Sex: Female

DRUGS (5)
  1. FOSAMAX [Suspect]
     Indication: OSTEOPOROSIS
     Dosage: `70 MG, QW
     Route: 048
     Dates: start: 2004, end: 20080327
  2. ALENDRONATE SODIUM [Suspect]
     Indication: OSTEOPOROSIS
     Dosage: 70 MG, QW
     Route: 048
     Dates: start: 20080327, end: 20110111
  3. FORTEO [Suspect]
     Indication: OSTEOPOROSIS
     Dosage: UNK
     Route: 058
     Dates: start: 2011
  4. FORTEO [Suspect]
     Indication: OSTEOPOROSIS PROPHYLAXIS
  5. CORTICOSTEROIDS (UNSPECIFIED) [Concomitant]
     Dosage: UNK
     Dates: start: 2000

REACTIONS (23)
  - Femur fracture [Recovered/Resolved]
  - Fall [Unknown]
  - Joint arthroplasty [Recovered/Resolved]
  - Femur fracture [Unknown]
  - Fracture nonunion [Recovered/Resolved]
  - Colectomy [Unknown]
  - Open reduction of fracture [Unknown]
  - Insulin-requiring type 2 diabetes mellitus [Unknown]
  - Osteoarthritis [Unknown]
  - Calcium deficiency [Unknown]
  - Pain [Not Recovered/Not Resolved]
  - Hypercholesterolaemia [Unknown]
  - Hysterectomy [Unknown]
  - Appendicectomy [Unknown]
  - Tonsillectomy [Unknown]
  - Transfusion [Unknown]
  - Radicular pain [Unknown]
  - Spinal osteoarthritis [Unknown]
  - Bursitis [Unknown]
  - Sciatica [Unknown]
  - Spinal column stenosis [Unknown]
  - Back pain [Unknown]
  - Gastrooesophageal reflux disease [Not Recovered/Not Resolved]
